FAERS Safety Report 4650474-6 (Version None)
Quarter: 2005Q2

REPORT INFORMATION
  Report Type: 
  Country: None (occurrence: None)
  Receive Date: 20050429
  Receipt Date: 20050426
  Transmission Date: 20051028
  Serious: Yes (Hospitalization)
  Sender: FDA-Public Use
  Company Number: J081-002-001939

PATIENT
  Age: 68 Year
  Sex: Male

DRUGS (6)
  1. ARICEPT [Suspect]
     Indication: DEMENTIA
     Dosage: 5 MG, 1 IN 1 D, ORAL
     Route: 048
     Dates: start: 20041001, end: 20050426
  2. NU-LOTAN (LOSARTAN POTASSIUM) [Concomitant]
  3. ALLOPURINOL [Concomitant]
  4. URSODIOL [Concomitant]
  5. MONILAC (LACTULOSE) [Concomitant]
  6. ARGAMATE (CALCIUM POLYSTRENE SULFONATE) [Concomitant]

REACTIONS (5)
  - ABNORMAL BEHAVIOUR [None]
  - DEPRESSED LEVEL OF CONSCIOUSNESS [None]
  - HYPERAMMONAEMIA [None]
  - RENAL IMPAIRMENT [None]
  - SPEECH DISORDER [None]
